FAERS Safety Report 7888785-3 (Version None)
Quarter: 2011Q4

REPORT INFORMATION
  Report Type: 
  Country: None (occurrence: None)
  Receive Date: 20111103
  Receipt Date: 20111024
  Transmission Date: 20120403
  Serious: Yes (Other)
  Sender: FDA-Public Use
  Company Number: BR-SANOFI-AVENTIS-2011SA070447

PATIENT
  Age: 85 Year
  Sex: Male
  Weight: 61 kg

DRUGS (4)
  1. METFORMIN HCL [Concomitant]
     Route: 048
  2. DIAMICRON [Concomitant]
     Route: 048
  3. LANTUS [Suspect]
     Dosage: DOSE: 5-7 IU QD
     Route: 058
     Dates: start: 20080101
  4. SOLOSTAR [Suspect]
     Indication: DEVICE THERAPY

REACTIONS (2)
  - JOINT INJURY [None]
  - FALL [None]
